FAERS Safety Report 18848358 (Version 1)
Quarter: 2021Q1

REPORT INFORMATION
  Report Type: Spontaneous
  Country: GB (occurrence: GB)
  Receive Date: 20210204
  Receipt Date: 20210204
  Transmission Date: 20210419
  Serious: Yes (Life-Threatening, Hospitalization)
  Sender: FDA-Public Use
  Company Number: GB-ASTRAZENECA-2021A027050

PATIENT
  Age: 55 Year
  Sex: Male

DRUGS (19)
  1. CLOZAPINE. [Suspect]
     Active Substance: CLOZAPINE
     Indication: SCHIZOPHRENIA
     Dosage: 50MG OM AND 75MG ON
     Route: 048
     Dates: end: 20201224
  2. ATORVASTATIN [Concomitant]
     Active Substance: ATORVASTATIN
     Dosage: AT NIGHT (20 MG,1 IN 1 D)
     Route: 048
  3. DIAZEPAM. [Concomitant]
     Active Substance: DIAZEPAM
     Dosage: 10 MG (5 MG,2 IN 1 D)
     Route: 048
  4. PROCYCLIDINE [Concomitant]
     Active Substance: PROCYCLIDINE
     Dosage: 10 MG (5 MG,2 IN 1 D)
     Route: 048
  5. SALBUTAMOL [Concomitant]
     Active Substance: ALBUTEROL
     Indication: ASTHMA
     Dosage: ONE?TWO PUFFS UP TO EVERY HOUR, MAX 8 PUFFS IN 24 HOURS (AS REQUIRED)
     Route: 055
  6. MIRTAZAPINE. [Concomitant]
     Active Substance: MIRTAZAPINE
     Dosage: AT NIGHT (45 MG,1 IN 1 D)
     Route: 048
  7. NICOTINE. [Concomitant]
     Active Substance: NICOTINE
     Dosage: ONE CARTRIDGE AS NEEDED (15 MG)
     Route: 055
  8. SODIUM PHOSPHATE [Concomitant]
     Active Substance: SODIUM PHOSPHATE
     Dosage: 118ML UP TO EVERY 12 HOURS (AS REQUIRED)
     Route: 054
  9. EVACAL D3 CHEWABLE [Concomitant]
     Dosage: 1500MG/400UNIT IN THE MORNING (1 DOSAGE FORMS,1 IN 1 D)
     Route: 048
  10. CYCLIZINE [Concomitant]
     Active Substance: CYCLIZINE
     Dosage: UP TO EVERY 4 HOURS, WHEN NEEDED, MAX 3 TABLETS IN 24 HOURS (50 MG)
     Route: 048
  11. LORAZEPAM. [Concomitant]
     Active Substance: LORAZEPAM
     Dosage: UP TO EVERY 2 HOURS, MAX 2MG IN 24 HOURS (1 MG,AS REQUIRED)
     Route: 048
  12. EMPAGLIFLOZIN [Concomitant]
     Active Substance: EMPAGLIFLOZIN
     Dosage: 25 MG (25 MG,1 IN 1 D)
     Route: 048
  13. MOVICOL [Concomitant]
     Active Substance: POLYETHYLENE GLYCOL 3350\POTASSIUM CHLORIDE\SODIUM BICARBONATE\SODIUM CHLORIDE
     Dosage: ONE SACHET (1 DOSAGE FORMS,1 IN 1 D)
     Route: 048
  14. BUDESONIDE AND FORMOTEROL FUMARATE [Concomitant]
     Active Substance: BUDESONIDE\FORMOTEROL FUMARATE
     Dosage: 2 DOSAGE FORMS,2 IN 1 D
     Route: 055
  15. FOLIC ACID. [Concomitant]
     Active Substance: FOLIC ACID
     Dosage: AT NIGHT (5 MG,1 IN 1 D)
     Route: 048
  16. QUETIAPINE. [Suspect]
     Active Substance: QUETIAPINE
     Indication: SCHIZOPHRENIA
     Dosage: EVERY NIGHT (750 MG,1 IN 1 D)
     Route: 048
  17. OMEPRAZOLE. [Concomitant]
     Active Substance: OMEPRAZOLE
     Dosage: 40 MG (40 MG,1 IN 1 D)
     Route: 048
  18. PARACETAMOL [Concomitant]
     Active Substance: ACETAMINOPHEN
     Dosage: MAX 4G IN 24 HOURS AS NEEDED (1 GM,1 IN 4 HR)
     Route: 048
  19. LACTULOSE. [Concomitant]
     Active Substance: LACTULOSE
     Indication: CONSTIPATION
     Dosage: 30 ML (15 ML,2 IN 1 D)
     Route: 048

REACTIONS (3)
  - Pancreatitis acute [Recovering/Resolving]
  - Abdominal pain upper [Recovering/Resolving]
  - Hypertriglyceridaemia [Recovering/Resolving]

NARRATIVE: CASE EVENT DATE: 20201222
